FAERS Safety Report 13919590 (Version 1)
Quarter: 2017Q3

REPORT INFORMATION
  Report Type: Spontaneous
  Country: US (occurrence: None)
  Receive Date: 20170829
  Receipt Date: 20170829
  Transmission Date: 20171127
  Serious: Yes (Hospitalization)
  Sender: FDA-Public Use
  Company Number: None

PATIENT
  Age: 89 Year
  Sex: Male

DRUGS (14)
  1. WARFARIN [Concomitant]
     Active Substance: WARFARIN
  2. TRAMADOL. [Concomitant]
     Active Substance: TRAMADOL
  3. FOLIC ACID. [Concomitant]
     Active Substance: FOLIC ACID
  4. PRADAXA [Concomitant]
     Active Substance: DABIGATRAN ETEXILATE MESYLATE
  5. SIMVASTATIN. [Concomitant]
     Active Substance: SIMVASTATIN
  6. PYRIDOSTIGM [Concomitant]
  7. METOPROLOL. [Concomitant]
     Active Substance: METOPROLOL
  8. TYLENOL [Concomitant]
     Active Substance: ACETAMINOPHEN
  9. DIGOX [Concomitant]
     Active Substance: DIGOXIN
  10. PREDNISONE. [Concomitant]
     Active Substance: PREDNISONE
  11. ASPIRIN. [Concomitant]
     Active Substance: ASPIRIN
  12. OXYCODONE [Concomitant]
     Active Substance: OXYCODONE
  13. AMOXICILLIN. [Concomitant]
     Active Substance: AMOXICILLIN
  14. ZYTIGA [Suspect]
     Active Substance: ABIRATERONE ACETATE
     Indication: PROSTATE CANCER
     Route: 048
     Dates: start: 20170125

REACTIONS (1)
  - Internal haemorrhage [None]

NARRATIVE: CASE EVENT DATE: 201708
